FAERS Safety Report 6192937-0 (Version None)
Quarter: 2009Q2

REPORT INFORMATION
  Report Type: 
  Country: None (occurrence: None)
  Receive Date: 20090518
  Receipt Date: 20090512
  Transmission Date: 20091009
  Serious: Yes (Other)
  Sender: FDA-Public Use
  Company Number: US-ALLERGAN-0906591US

PATIENT
  Age: 45 Year
  Sex: Male

DRUGS (2)
  1. BOTOX [Suspect]
     Indication: MUSCLE SPASTICITY
     Dosage: 400 UNITS, SINGLE
     Route: 030
     Dates: start: 20090101, end: 20090101
  2. BOTOX [Suspect]
     Indication: BRAIN INJURY
     Dosage: 500 UNITS, SINGLE
     Route: 030
     Dates: start: 20081001, end: 20081001

REACTIONS (1)
  - MUSCULAR WEAKNESS [None]
